FAERS Safety Report 4823108-5 (Version None)
Quarter: 2005Q4

REPORT INFORMATION
  Report Type: 
  Country: None (occurrence: None)
  Receive Date: 20051108
  Receipt Date: 20050819
  Transmission Date: 20060501
  Serious: Yes (Hospitalization, Other)
  Sender: FDA-Public Use
  Company Number: US-MERCK-0508USA03404

PATIENT
  Age: 55 Year
  Sex: Female
  Weight: 112 kg

DRUGS (2)
  1. FOSAMAX [Suspect]
     Indication: OSTEOPOROSIS
     Route: 048
     Dates: start: 20000728, end: 20050601
  2. FOSAMAX [Suspect]
     Indication: OSTEOPENIA
     Route: 048
     Dates: start: 20000728, end: 20050601

REACTIONS (2)
  - FOREIGN BODY TRAUMA [None]
  - PNEUMONIA ASPIRATION [None]
